FAERS Safety Report 10007850 (Version 2)
Quarter: 2014Q1

REPORT INFORMATION
  Report Type: Spontaneous
  Country: US (occurrence: US)
  Receive Date: 20140313
  Receipt Date: 20140313
  Transmission Date: 20141002
  Serious: No
  Sender: FDA-Public Use
  Company Number: US-GILEAD-2013-0070040

PATIENT
  Sex: Female
  Weight: 54.88 kg

DRUGS (9)
  1. LETAIRIS [Suspect]
     Indication: SYSTEMIC SCLEROSIS
     Dosage: 5 MG, QD
     Route: 048
     Dates: start: 20121226, end: 201302
  2. ADCIRCA [Suspect]
     Dosage: 20 MG, UNK
  3. RECLAST [Concomitant]
  4. METOPROLOL [Concomitant]
  5. SIMVASTATIN [Concomitant]
  6. FUROSEMIDE [Concomitant]
  7. OMEPRAZOLE [Concomitant]
  8. KLOR-CON [Concomitant]
  9. DIGOXIN [Concomitant]

REACTIONS (1)
  - Malaise [Unknown]
